FAERS Safety Report 5043196-3 (Version None)
Quarter: 2006Q2

REPORT INFORMATION
  Report Type: 
  Country: None (occurrence: None)
  Receive Date: 20060629
  Receipt Date: 20030926
  Transmission Date: 20061013
  Serious: Yes (Hospitalization)
  Sender: FDA-Public Use
  Company Number: 226732

PATIENT
  Age: 72 Year
  Sex: Female
  Weight: 88.5 kg

DRUGS (7)
  1. MABTHERA (RITUXIMAB) CONC FOR SOLUTION FOR INFUSION [Suspect]
     Dosage: 750 MG, 3/WEEK, INTRAVENOUS
     Route: 042
     Dates: start: 20030911, end: 20030929
  2. ROFERON-A [Suspect]
     Dosage: 45 MG, 3/WEEK, SUBCUTANEOUS
     Route: 058
     Dates: start: 20030911, end: 20030929
  3. CEFUROXIME AXETIL [Concomitant]
  4. CLINDAMYCIN [Concomitant]
  5. SULFAMETHOXAZOLE + TRIMETHOPRIM [Concomitant]
  6. QUESTRAN (CHOLESTYRAMINE RESIN) [Concomitant]
  7. ISPAGHULA (PSYLLIUM HUSK) [Concomitant]

REACTIONS (2)
  - ASTHENIA [None]
  - DEHYDRATION [None]
